FAERS Safety Report 4597576-0 (Version None)
Quarter: 2005Q1

REPORT INFORMATION
  Report Type: 
  Country: None (occurrence: None)
  Receive Date: 20050303
  Receipt Date: 20050218
  Transmission Date: 20050727
  Serious: Yes (Death)
  Sender: FDA-Public Use
  Company Number: DE-JNJFOC-20050204934

PATIENT
  Age: 58 Year
  Sex: Female

DRUGS (15)
  1. RISPERDAL [Suspect]
  2. RISPERDAL [Suspect]
     Indication: DRUG USE FOR UNKNOWN INDICATION
     Dosage: 1-3MG
  3. TRUXAL [Suspect]
  4. TRUXAL [Suspect]
     Indication: DRUG USE FOR UNKNOWN INDICATION
  5. TAVOR [Suspect]
     Indication: DRUG USE FOR UNKNOWN INDICATION
  6. EUNERPAN [Suspect]
  7. EUNERPAN [Suspect]
  8. EUNERPAN [Suspect]
     Indication: DRUG USE FOR UNKNOWN INDICATION
  9. CARBAMAZEPINE [Suspect]
     Indication: DRUG USE FOR UNKNOWN INDICATION
  10. DELIX 2.5 PLUS [Concomitant]
  11. DELIX 2.5 PLUS [Concomitant]
     Indication: DRUG USE FOR UNKNOWN INDICATION
  12. ASPIRIN [Concomitant]
     Indication: DRUG USE FOR UNKNOWN INDICATION
  13. ISMO [Concomitant]
     Indication: DRUG USE FOR UNKNOWN INDICATION
  14. DYTIDE H [Concomitant]
  15. DYTIDE H [Concomitant]
     Indication: DRUG USE FOR UNKNOWN INDICATION
     Dosage: 1 TBL.

REACTIONS (14)
  - ARTERIOSCLEROSIS [None]
  - BRONCHIECTASIS [None]
  - CARDIO-RESPIRATORY ARREST [None]
  - CARDIOMEGALY [None]
  - CIRCULATORY COLLAPSE [None]
  - CYANOSIS [None]
  - DRUG INTERACTION [None]
  - DYSPNOEA [None]
  - HEPATIC CONGESTION [None]
  - LOSS OF CONSCIOUSNESS [None]
  - PULMONARY FIBROSIS [None]
  - RIGHT VENTRICULAR FAILURE [None]
  - SPLEEN CONGESTION [None]
  - SYNCOPE [None]
